FAERS Safety Report 4417787-4 (Version None)
Quarter: 2004Q2

REPORT INFORMATION
  Report Type: 
  Country: None (occurrence: None)
  Receive Date: 20040621
  Receipt Date: 20040427
  Transmission Date: 20050107
  Serious: No
  Sender: FDA-Public Use
  Company Number: PHEH2004US04729

PATIENT
  Age: 49 Year
  Sex: Male

DRUGS (4)
  1. ZOMETA [Suspect]
     Indication: PROSTATE CANCER
     Dosage: 4 MG, QMO, INTRAVENOUS
     Route: 042
     Dates: start: 20040101
  2. ZOLADEX [Concomitant]
  3. TAMSULOSIN HYDROCHLORIDE (TAMSULOSIN HYDROCHLORIDE) [Concomitant]
  4. CALCIUM [Concomitant]

REACTIONS (5)
  - ACCIDENT [None]
  - CELLULITIS [None]
  - HAEMATOMA [None]
  - PAIN EXACERBATED [None]
  - PYREXIA [None]
